FAERS Safety Report 10310182 (Version 5)
Quarter: 2018Q1

REPORT INFORMATION
  Report Type: Report from Study
  Country: US (occurrence: US)
  Receive Date: 20140717
  Receipt Date: 20180329
  Transmission Date: 20180508
  Serious: Yes (Other)
  Sender: FDA-Public Use
  Company Number: US-ROCHE-1435578

PATIENT
  Age: 10 Year
  Sex: Female
  Weight: 29.8 kg

DRUGS (19)
  1. NUTROPIN AQ [Suspect]
     Active Substance: SOMATROPIN
     Dosage: 7 DAYS/WEEK
     Route: 058
  2. POTASSIUM CHLORIDE. [Concomitant]
     Active Substance: POTASSIUM CHLORIDE
     Route: 048
  3. PERIACTIN [Concomitant]
     Active Substance: CYPROHEPTADINE HYDROCHLORIDE
  4. VITAMIN B COMPLEX [Concomitant]
     Active Substance: CYANOCOBALAMIN\DEXPANTHENOL\NIACINAMIDE\PYRIDOXINE HYDROCHLORIDE\RIBOFLAVIN 5^-PHOSPHATE SODIUM\THIAMINE HYDROCHLORIDE\VITAMIN B COMPLEX
  5. NUTROPIN AQ [Suspect]
     Active Substance: SOMATROPIN
     Indication: FAILURE TO THRIVE
     Route: 058
  6. AMILORIDE [Concomitant]
     Active Substance: AMILORIDE
     Route: 065
  7. MIDAMOR [Concomitant]
     Active Substance: AMILORIDE HYDROCHLORIDE
  8. EPLERENONE. [Concomitant]
     Active Substance: EPLERENONE
     Dosage: IN MORNING
     Route: 065
  9. SPIRONOLACTONE. [Concomitant]
     Active Substance: SPIRONOLACTONE
     Dosage: THREE TABLETS AT PM
     Route: 048
  10. INDOCIN (UNITED STATES) [Concomitant]
  11. NUTROPIN AQ [Suspect]
     Active Substance: SOMATROPIN
     Indication: GROWTH HORMONE DEFICIENCY
     Dosage: AM
     Route: 058
     Dates: start: 20140106
  12. ZANTAC [Concomitant]
     Active Substance: RANITIDINE HYDROCHLORIDE
     Route: 065
  13. AMOXIL [Concomitant]
     Active Substance: AMOXICILLIN
  14. PERIDEX (UNITED STATES) [Concomitant]
     Dosage: MOUTHWASH
     Route: 065
  15. VITAMIN D3 [Concomitant]
     Active Substance: CHOLECALCIFEROL
  16. MORTIN [Concomitant]
     Active Substance: SULFAMETHOXAZOLE\TRIMETHOPRIM
  17. POTASSIUM CHLORIDE. [Concomitant]
     Active Substance: POTASSIUM CHLORIDE
     Route: 048
  18. NUTROPIN AQ [Suspect]
     Active Substance: SOMATROPIN
     Indication: HYPOPITUITARISM
     Dosage: PM
     Route: 058
     Dates: start: 20140106
  19. ZETIA [Concomitant]
     Active Substance: EZETIMIBE
     Dosage: QHS
     Route: 065

REACTIONS (15)
  - Insulin-like growth factor increased [Unknown]
  - Injection site pain [Recovered/Resolved]
  - Device issue [Unknown]
  - Hypercholesterolaemia [Unknown]
  - Hypertriglyceridaemia [Unknown]
  - Pain in extremity [Unknown]
  - Blood calcium increased [Unknown]
  - Injection site haemorrhage [Recovered/Resolved]
  - Injection site swelling [Recovered/Resolved]
  - Headache [Unknown]
  - Abdominal pain upper [Unknown]
  - Injection site bruising [Recovered/Resolved]
  - Blood potassium increased [Unknown]
  - Incorrect dose administered [Unknown]
  - Myalgia [Unknown]

NARRATIVE: CASE EVENT DATE: 20150518
